FAERS Safety Report 6218509-7 (Version None)
Quarter: 2009Q2

REPORT INFORMATION
  Report Type: 
  Country: None (occurrence: None)
  Receive Date: 20090604
  Receipt Date: 20090604
  Transmission Date: 20091009
  Serious: Yes (Death)
  Sender: FDA-Public Use
  Company Number: None

PATIENT
  Sex: Female

DRUGS (2)
  1. SERTRALINE [Suspect]
     Indication: ANXIETY DISORDER
     Dosage: 200 MG PER DAY PO
     Route: 048
     Dates: start: 20071127, end: 20080222
  2. SERTRALINE [Suspect]
     Indication: BIPOLAR DISORDER
     Dosage: 200 MG PER DAY PO
     Route: 048
     Dates: start: 20071127, end: 20080222

REACTIONS (4)
  - ABNORMAL BEHAVIOUR [None]
  - REFUSAL OF TREATMENT BY PATIENT [None]
  - SPEECH DISORDER [None]
  - THERAPEUTIC AGENT TOXICITY [None]
